FAERS Safety Report 21137927 (Version 1)
Quarter: 2022Q3

REPORT INFORMATION
  Report Type: Spontaneous
  Country: US (occurrence: None)
  Receive Date: 20220727
  Receipt Date: 20220727
  Transmission Date: 20221027
  Serious: Yes (Hospitalization)
  Sender: FDA-Public Use
  Company Number: None

PATIENT
  Sex: Female
  Weight: 78.47 kg

DRUGS (7)
  1. KISQALI [Suspect]
     Active Substance: RIBOCICLIB
     Indication: Breast dysplasia
     Dosage: 600MG DAILY ORAL?
     Route: 048
     Dates: start: 20220711
  2. ASPIRIN [Concomitant]
     Active Substance: ASPIRIN
  3. ENTRESTO [Concomitant]
     Active Substance: SACUBITRIL\VALSARTAN
  4. FEMARA [Concomitant]
     Active Substance: LETROZOLE
  5. ONDANSETRON [Concomitant]
     Active Substance: ONDANSETRON
  6. PROCHLORPERAZINE [Concomitant]
     Active Substance: PROCHLORPERAZINE
  7. SIMVASTATIN [Concomitant]
     Active Substance: SIMVASTATIN

REACTIONS (2)
  - Hospitalisation [None]
  - Therapy cessation [None]
